FAERS Safety Report 16141058 (Version 1)
Quarter: 2019Q1

REPORT INFORMATION
  Report Type: Spontaneous
  Country: US (occurrence: US)
  Receive Date: 20190226
  Receipt Date: 20190226
  Transmission Date: 20190418
  Serious: Yes (Hospitalization)
  Sender: FDA-Public Use
  Company Number: None

PATIENT
  Age: 56 Year
  Sex: Male
  Weight: 95.4 kg

DRUGS (4)
  1. VINCRISTINE SULFATE. [Suspect]
     Active Substance: VINCRISTINE SULFATE
     Dates: end: 20190201
  2. CYTARABINE. [Suspect]
     Active Substance: CYTARABINE
     Dates: end: 20190125
  3. DEXAMETHASONE. [Suspect]
     Active Substance: DEXAMETHASONE
     Dates: end: 20190131
  4. DAUNORUBICIN [Suspect]
     Active Substance: DAUNORUBICIN
     Dates: end: 20190201

REACTIONS (5)
  - Febrile neutropenia [None]
  - Pyrexia [None]
  - Fatigue [None]
  - Haemoglobin decreased [None]
  - Platelet count abnormal [None]

NARRATIVE: CASE EVENT DATE: 20190202
